FAERS Safety Report 8938518 (Version 1)
Quarter: 2012Q4

REPORT INFORMATION
  Report Type: 
  Country: DE (occurrence: DE)
  Receive Date: 20121201
  Receipt Date: 20121201
  Transmission Date: 20130627
  Serious: Yes (Other)
  Sender: FDA-Public Use
  Company Number: DE-MERCK-1211DEU009979

PATIENT
  Age: 1 Day
  Sex: Female
  Weight: 3.7 kg

DRUGS (3)
  1. MIRTAZAPIN [Suspect]
     Indication: DEPRESSION
     Dosage: 15 mg, qd
     Route: 064
     Dates: start: 201112, end: 20120628
  2. SERTRALINE HYDROCHLORIDE [Suspect]
     Indication: DEPRESSION
     Dosage: 50 mg, qd
     Route: 064
     Dates: end: 20120628
  3. CENTRUM [Concomitant]
     Indication: PROPHYLAXIS OF NEURAL TUBE DEFECT
     Dosage: 0.4 mg, UNK
     Route: 064

REACTIONS (2)
  - Infantile apnoeic attack [Recovered/Resolved]
  - Foetal exposure during pregnancy [Unknown]
